FAERS Safety Report 25949016 (Version 2)
Quarter: 2025Q4

REPORT INFORMATION
  Report Type: Spontaneous
  Country: JP (occurrence: JP)
  Receive Date: 20251022
  Receipt Date: 20251120
  Transmission Date: 20260118
  Serious: Yes (Death, Hospitalization)
  Sender: ELI LILLY AND COMPANY
  Company Number: JP-NShinyaku-EVA202512849ZZLILLY

PATIENT
  Age: 64 Year
  Sex: Female

DRUGS (6)
  1. TADALAFIL [Suspect]
     Active Substance: TADALAFIL
     Indication: Pulmonary arterial hypertension
     Dosage: UNKNOWN
     Route: 048
  2. TADALAFIL [Suspect]
     Active Substance: TADALAFIL
     Dosage: 40 MG
     Route: 048
     Dates: start: 20250916
  3. UPTRAVI [Concomitant]
     Active Substance: SELEXIPAG
     Dosage: 1.6 MG, BID
     Route: 048
     Dates: start: 20210930, end: 2025
  4. OPSUMIT [Concomitant]
     Active Substance: MACITENTAN
     Dosage: UNKNOWN
     Route: 048
  5. OPSUMIT [Concomitant]
     Active Substance: MACITENTAN
     Dosage: 10 MG
     Route: 048
     Dates: start: 20250916
  6. MACITENTAN\TADALAFIL [Concomitant]
     Active Substance: MACITENTAN\TADALAFIL
     Route: 048
     Dates: end: 20250916

REACTIONS (3)
  - Pulmonary arterial hypertension [Fatal]
  - Cardiac failure [Fatal]
  - Nausea [Unknown]

NARRATIVE: CASE EVENT DATE: 20250918
